FAERS Safety Report 23483183 (Version 1)
Quarter: 2024Q1

REPORT INFORMATION
  Report Type: Spontaneous
  Country: CA (occurrence: CA)
  Receive Date: 20240205
  Receipt Date: 20240205
  Transmission Date: 20240410
  Serious: Yes (Other)
  Sender: FDA-Public Use
  Company Number: CA-JNJFOC-20240171664

PATIENT
  Sex: Male

DRUGS (2)
  1. IMBRUVICA [Suspect]
     Active Substance: IBRUTINIB
     Indication: Leukaemia
     Route: 048
  2. DONEPEZIL [Concomitant]
     Active Substance: DONEPEZIL
     Indication: Dementia Alzheimer^s type
     Route: 065

REACTIONS (8)
  - Delirium [Unknown]
  - Lethargy [Unknown]
  - Slow response to stimuli [Unknown]
  - Wrong technique in product usage process [Unknown]
  - Influenza [Unknown]
  - Dementia Alzheimer^s type [Unknown]
  - Product use complaint [Unknown]
  - Cognitive disorder [Unknown]
